FAERS Safety Report 9355753 (Version 2)
Quarter: 2013Q3

REPORT INFORMATION
  Report Type: Spontaneous
  Country: US (occurrence: US)
  Receive Date: 20130619
  Receipt Date: 20130711
  Transmission Date: 20140515
  Serious: Yes (Death, Hospitalization, Other)
  Sender: FDA-Public Use
  Company Number: US-PFIZER INC-2006082894

PATIENT
  Age: 74 Year
  Sex: Male
  Weight: 89.36 kg

DRUGS (9)
  1. CELEBREX [Suspect]
     Indication: OSTEOARTHRITIS
     Dosage: 100 MG, 1X/DAY
     Dates: start: 1999
  2. METHOTREXATE SODIUM [Suspect]
     Indication: RHEUMATOID ARTHRITIS
     Dosage: UNK
  3. LYRICA [Suspect]
     Indication: NEUROPATHY PERIPHERAL
     Dosage: 75 MG, 2X/DAY
     Route: 048
     Dates: start: 20060626
  4. ARAVA [Concomitant]
     Dosage: 10 MG, DAILY
  5. PREDNISONE [Concomitant]
     Dosage: 3 MG, 1X/DAY
  6. FOLIC ACID [Concomitant]
     Dosage: 1 MG, 1X/DAY
  7. NEXIUM [Concomitant]
     Dosage: 40 MG, 2X/DAY
  8. STOOL SOFTENER [Concomitant]
     Dosage: UNK
  9. ARANESP [Concomitant]
     Dosage: UNK

REACTIONS (18)
  - Death [Fatal]
  - Myelodysplastic syndrome [Not Recovered/Not Resolved]
  - Rheumatoid arthritis [Not Recovered/Not Resolved]
  - Polyneuropathy [Not Recovered/Not Resolved]
  - Hallucination [Not Recovered/Not Resolved]
  - Amnesia [Not Recovered/Not Resolved]
  - Drug ineffective [Not Recovered/Not Resolved]
  - Platelet count decreased [Unknown]
  - Soft tissue disorder [Not Recovered/Not Resolved]
  - Dizziness [Not Recovered/Not Resolved]
  - Body height decreased [Not Recovered/Not Resolved]
  - Overweight [Not Recovered/Not Resolved]
  - Glucose tolerance impaired [Unknown]
  - Swelling [Unknown]
  - Somnolence [Not Recovered/Not Resolved]
  - Speech disorder [Not Recovered/Not Resolved]
  - Balance disorder [Not Recovered/Not Resolved]
  - Abdominal pain [Not Recovered/Not Resolved]
